FAERS Safety Report 4313895-7 (Version None)
Quarter: 2004Q1

REPORT INFORMATION
  Report Type: 
  Country: None (occurrence: None)
  Receive Date: 20040305
  Receipt Date: 20040227
  Transmission Date: 20041129
  Serious: Yes (Hospitalization)
  Sender: FDA-Public Use
  Company Number: A206545

PATIENT
  Age: 25 Year
  Sex: Female

DRUGS (2)
  1. SILDENAFIL (SILDENAFIL) [Suspect]
     Indication: PULMONARY HYPERTENSION
     Dosage: 150 MG (TID) ,ORAL
     Route: 048
     Dates: start: 20011213, end: 20020211
  2. WARFARIN SODIUM [Concomitant]

REACTIONS (6)
  - DYSPEPSIA [None]
  - DYSPNOEA [None]
  - HEADACHE [None]
  - VAGINAL HAEMORRHAGE [None]
  - VAGINAL LESION [None]
  - VISION BLURRED [None]
